FAERS Safety Report 5507845-5 (Version None)
Quarter: 2007Q4

REPORT INFORMATION
  Report Type: 
  Country: None (occurrence: None)
  Receive Date: 20071106
  Receipt Date: 20071022
  Transmission Date: 20080405
  Serious: Yes (Life-Threatening, Disabling)
  Sender: FDA-Public Use
  Company Number: IE-PURDUE-GBR_2007_0003391

PATIENT
  Sex: Female

DRUGS (1)
  1. OXYCONTIN [Suspect]
     Indication: BACK PAIN
     Dosage: 10 MG, BID
     Route: 048

REACTIONS (4)
  - AMNESIA [None]
  - BRAIN DAMAGE [None]
  - RESPIRATORY ARREST [None]
  - WALKING AID USER [None]
